FAERS Safety Report 5509427-8 (Version None)
Quarter: 2007Q4

REPORT INFORMATION
  Report Type: 
  Country: None (occurrence: None)
  Receive Date: 20071107
  Receipt Date: 20071029
  Transmission Date: 20080405
  Serious: Yes (Hospitalization, Disabling, Other)
  Sender: FDA-Public Use
  Company Number: JP-PFIZER INC-2007057101

PATIENT
  Sex: Male
  Weight: 64 kg

DRUGS (19)
  1. ZYVOX [Suspect]
     Indication: STAPHYLOCOCCAL SEPSIS
     Dosage: DAILY DOSE:1200MG
     Route: 042
     Dates: start: 20070526, end: 20070629
  2. PRODIF [Concomitant]
     Indication: SYSTEMIC CANDIDA
     Dates: start: 20070517, end: 20070624
  3. ANTIBIOTICS [Concomitant]
  4. ELASPOL [Concomitant]
     Indication: RESPIRATORY DISORDER
     Route: 042
     Dates: start: 20070601, end: 20070614
  5. TAZOCIN [Concomitant]
     Indication: PSEUDOMONAS INFECTION
     Route: 042
     Dates: start: 20070607, end: 20070611
  6. AMIKACIN [Concomitant]
     Indication: PSEUDOMONAS INFECTION
  7. OMEPRAZOLE [Concomitant]
     Route: 042
  8. DORMICUM FOR INJECTION [Concomitant]
     Route: 042
     Dates: start: 20070517, end: 20070724
  9. BUPRENORPHINE HCL [Concomitant]
     Route: 042
     Dates: start: 20070517, end: 20070724
  10. DOPAMINE HYDROCHLORIDE [Concomitant]
     Route: 042
     Dates: start: 20070517, end: 20070701
  11. ALBUMIN (HUMAN) [Concomitant]
     Route: 042
     Dates: start: 20070601, end: 20070606
  12. NORADRENALINE [Concomitant]
     Route: 042
  13. HICALIQ [Concomitant]
     Route: 042
     Dates: end: 20070614
  14. KIDMIN [Concomitant]
     Route: 042
     Dates: end: 20070614
  15. VITAJECT [Concomitant]
     Route: 042
     Dates: end: 20070614
  16. SAXIZON [Concomitant]
     Route: 042
     Dates: start: 20070609, end: 20070617
  17. MEYLON [Concomitant]
     Route: 042
  18. ELENTAL [Concomitant]
     Route: 048
  19. MEROPEN [Concomitant]
     Route: 042
     Dates: start: 20070624, end: 20070627

REACTIONS (2)
  - ANAEMIA HAEMOLYTIC AUTOIMMUNE [None]
  - THROMBOCYTOPENIA [None]
